FAERS Safety Report 25069413 (Version 1)
Quarter: 2025Q1

REPORT INFORMATION
  Report Type: Spontaneous
  Country: US (occurrence: US)
  Receive Date: 20250312
  Receipt Date: 20250312
  Transmission Date: 20250408
  Serious: No
  Sender: COREPHARMA LLC
  Company Number: US-CorePharma LLC-2172728

PATIENT

DRUGS (5)
  1. SUMATRIPTAN SUCCINATE [Suspect]
     Active Substance: SUMATRIPTAN SUCCINATE
     Indication: Migraine
  2. CoQI0 + Riboflavin + Magnesium vitamins [Concomitant]
  3. PROPRANOLOL [Concomitant]
     Active Substance: PROPRANOLOL HYDROCHLORIDE
  4. Natural ginger shots [Concomitant]
  5. PEPPERMINT OIL [Concomitant]
     Active Substance: PEPPERMINT OIL

REACTIONS (3)
  - Impaired quality of life [Unknown]
  - Drug ineffective [Unknown]
  - Pain [Unknown]
